FAERS Safety Report 23054753 (Version 1)
Quarter: 2023Q4

REPORT INFORMATION
  Report Type: Spontaneous
  Country: PL (occurrence: PL)
  Receive Date: 20231011
  Receipt Date: 20231011
  Transmission Date: 20240110
  Serious: Yes (Other)
  Sender: FDA-Public Use
  Company Number: PL-TEVA-2023-PL-2934162

PATIENT
  Age: 58 Year
  Sex: Female

DRUGS (6)
  1. VINCRISTINE [Suspect]
     Active Substance: VINCRISTINE
     Indication: B-cell small lymphocytic lymphoma
     Dosage: INITIALLY THREE COURSES WERE GIVEN. LATER, TWO COURSES WERE ADMINISTERED
     Route: 065
  2. RITUXIMAB [Suspect]
     Active Substance: RITUXIMAB
     Indication: B-cell small lymphocytic lymphoma
     Dosage: INITIALLY THREE COURSES WERE GIVEN. LATER, TWO COURSES WERE ADMINISTERED
     Route: 065
  3. CYCLOPHOSPHAMIDE [Suspect]
     Active Substance: CYCLOPHOSPHAMIDE
     Indication: B-cell small lymphocytic lymphoma
     Dosage: INITIALLY THREE COURSES WERE GIVEN. LATER, SIX COURSES FOLLOWED BY TWO COURSES WERE ADMINISTERED
     Route: 065
  4. DOXORUBICIN [Suspect]
     Active Substance: DOXORUBICIN
     Indication: B-cell small lymphocytic lymphoma
     Dosage: INITIALLY THREE COURSES WERE GIVEN. LATER, TWO COURSES WERE ADMINISTERED
     Route: 065
  5. PREDNISONE [Suspect]
     Active Substance: PREDNISONE
     Indication: B-cell small lymphocytic lymphoma
     Dosage: INITIALLY THREE COURSES WERE GIVEN. LATER, TWO COURSES WERE ADMINISTERED
     Route: 065
  6. FLUDARABINE [Concomitant]
     Active Substance: FLUDARABINE PHOSPHATE
     Indication: B-cell small lymphocytic lymphoma
     Dosage: SIX COURSES
     Route: 065

REACTIONS (2)
  - Pancytopenia [Unknown]
  - Infection [Unknown]
